FAERS Safety Report 7347818-3 (Version None)
Quarter: 2011Q1

REPORT INFORMATION
  Report Type: 
  Country: None (occurrence: None)
  Receive Date: 20110311
  Receipt Date: 20110228
  Transmission Date: 20110831
  Serious: Yes (Hospitalization)
  Sender: FDA-Public Use
  Company Number: JP-MERCK-1010USA02800

PATIENT
  Age: 68 Year
  Sex: Female

DRUGS (5)
  1. MEVALOTIN [Concomitant]
     Indication: HYPERLIPIDAEMIA
     Route: 048
  2. THYRADIN-S [Concomitant]
     Indication: HYPOTHYROIDISM
     Route: 048
  3. ALFAROL [Concomitant]
     Indication: OSTEOPOROSIS
     Route: 048
     Dates: start: 20000414, end: 20011102
  4. FOSAMAX [Suspect]
     Indication: OSTEOPOROSIS
     Route: 048
     Dates: start: 20011019, end: 20100930
  5. ASPARA CA [Concomitant]
     Indication: OSTEOPOROSIS
     Route: 048
     Dates: start: 20000629, end: 20011102

REACTIONS (1)
  - FEMUR FRACTURE [None]
